FAERS Safety Report 4752871-7 (Version None)
Quarter: 2005Q3

REPORT INFORMATION
  Report Type: 
  Country: None (occurrence: None)
  Receive Date: 20050714
  Receipt Date: 20040608
  Transmission Date: 20060218
  Serious: Yes (Hospitalization, Other)
  Sender: FDA-Public Use
  Company Number: 200412372US

PATIENT
  Age: 51 Year
  Sex: Female
  Weight: 68 kg

DRUGS (3)
  1. TAXOTERE [Suspect]
     Indication: BREAST CANCER
     Dosage: 194 MG Q3W IV
     Route: 042
     Dates: start: 20040311, end: 20040311
  2. DOCUSATE SODIUM (STOOL SOFTENER) [Concomitant]
  3. DECADRON [Concomitant]

REACTIONS (10)
  - BACK PAIN [None]
  - BLISTER [None]
  - DEHYDRATION [None]
  - DIFFICULTY IN WALKING [None]
  - FATIGUE [None]
  - HEADACHE [None]
  - NAUSEA [None]
  - PAIN IN EXTREMITY [None]
  - RASH [None]
  - VOMITING [None]
